FAERS Safety Report 24968625 (Version 1)
Quarter: 2025Q1

REPORT INFORMATION
  Report Type: Spontaneous
  Country: DE (occurrence: DE)
  Receive Date: 20250214
  Receipt Date: 20250214
  Transmission Date: 20250409
  Serious: Yes (Death, Other)
  Sender: DR REDDYS
  Company Number: DE-GERMAN-DEU/2025/02/002268

PATIENT

DRUGS (2)
  1. CLOZAPINE [Suspect]
     Active Substance: CLOZAPINE
     Indication: Antipsychotic therapy
  2. PIRENZEPINE [Suspect]
     Active Substance: PIRENZEPINE
     Indication: Antipsychotic therapy

REACTIONS (1)
  - Ileus [Fatal]
